FAERS Safety Report 9495730 (Version 4)
Quarter: 2014Q3

REPORT INFORMATION
  Report Type: Report from Study
  Country: AU (occurrence: AU)
  Receive Date: 20130903
  Receipt Date: 20140811
  Transmission Date: 20150326
  Serious: Yes (Hospitalization)
  Sender: FDA-Public Use
  Company Number: AU-CELGENEUS-008-21660-13082771

PATIENT
  Age: 47 Year
  Sex: Male

DRUGS (8)
  1. FUNGILIN [Concomitant]
     Active Substance: AMPHOTERICIN B
     Indication: PRODUCT USED FOR UNKNOWN INDICATION
     Route: 048
     Dates: start: 201209
  2. LANTUS [Concomitant]
     Active Substance: INSULIN GLARGINE
     Indication: PRODUCT USED FOR UNKNOWN INDICATION
     Dosage: 13 DROPS
     Route: 048
     Dates: start: 201306
  3. ABRAXANE [Suspect]
     Active Substance: PACLITAXEL
     Indication: PANCREATIC CARCINOMA
     Route: 041
     Dates: start: 20130716, end: 20130818
  4. GEMCITABINE [Suspect]
     Active Substance: GEMCITABINE\GEMCITABINE HYDROCHLORIDE
     Indication: PANCREATIC CARCINOMA
     Route: 065
     Dates: start: 20130716, end: 20130818
  5. METAPRAMINE [Concomitant]
     Indication: PRODUCT USED FOR UNKNOWN INDICATION
     Route: 048
     Dates: start: 201306
  6. DIAMICRON [Concomitant]
     Active Substance: GLICLAZIDE
     Indication: PRODUCT USED FOR UNKNOWN INDICATION
     Dosage: 60 MILLIGRAM
     Route: 048
     Dates: start: 201206
  7. CANESTEN [Concomitant]
     Active Substance: CLOTRIMAZOLE
     Indication: PRODUCT USED FOR UNKNOWN INDICATION
     Dosage: 10 MILLIGRAM
     Route: 048
     Dates: start: 201209
  8. COVERSYL [Concomitant]
     Active Substance: PERINDOPRIL
     Indication: PRODUCT USED FOR UNKNOWN INDICATION
     Dosage: 25 MILLIGRAM
     Route: 048
     Dates: start: 201209

REACTIONS (1)
  - Cholangitis [Recovered/Resolved]

NARRATIVE: CASE EVENT DATE: 20130814
